FAERS Safety Report 20825456 (Version 1)
Quarter: 2022Q2

REPORT INFORMATION
  Report Type: Spontaneous
  Country: RU (occurrence: None)
  Receive Date: 20220513
  Receipt Date: 20220513
  Transmission Date: 20220721
  Serious: Yes (Other)
  Sender: FDA-Public Use
  Company Number: 2022A178580

PATIENT
  Age: 61 Year
  Sex: Female
  Weight: 73 kg

DRUGS (3)
  1. DAPAGLIFLOZIN [Suspect]
     Active Substance: DAPAGLIFLOZIN
     Indication: Type 2 diabetes mellitus
     Route: 048
     Dates: start: 202110, end: 202201
  2. TELMISARTAN [Concomitant]
     Active Substance: TELMISARTAN
  3. METFORMIN [Concomitant]
     Active Substance: METFORMIN HYDROCHLORIDE
     Indication: Type 2 diabetes mellitus

REACTIONS (4)
  - Cystitis haemorrhagic [Recovered/Resolved]
  - Cystitis [Unknown]
  - Secretion discharge [Unknown]
  - Pruritus genital [Unknown]

NARRATIVE: CASE EVENT DATE: 20220101
